FAERS Safety Report 16955970 (Version 1)
Quarter: 2019Q4

REPORT INFORMATION
  Report Type: Spontaneous
  Country: US (occurrence: US)
  Receive Date: 20191023
  Receipt Date: 20191023
  Transmission Date: 20200122
  Serious: Yes (Disabling)
  Sender: FDA-Public Use
  Company Number: None

PATIENT
  Age: 66 Year
  Sex: Female

DRUGS (6)
  1. VITAMIN C [Concomitant]
     Active Substance: ASCORBIC ACID
  2. TYLENOL [Concomitant]
     Active Substance: ACETAMINOPHEN
  3. VITAMIN D [Concomitant]
     Active Substance: VITAMIN D NOS
  4. NEOMYCIN/POLYMYXIN B SULFATE/DEXAMETHASONE OPHTHALMIC DROPS [Suspect]
     Active Substance: DEXAMETHASONE\NEOMYCIN SULFATE\POLYMYXIN B SULFATE
     Indication: EYE INFECTION
     Dosage: ?          QUANTITY:1 DROP(S);OTHER FREQUENCY:QID, TID, BID, QD;?
     Route: 047
     Dates: start: 20190919, end: 20191006
  5. FISH OIL SUPPLMENTS [Concomitant]
  6. TEMAZEPAM. [Concomitant]
     Active Substance: TEMAZEPAM

REACTIONS (5)
  - Product prescribing issue [None]
  - Eye discharge [None]
  - Facial pain [None]
  - Eye pain [None]
  - Ocular hypertension [None]

NARRATIVE: CASE EVENT DATE: 20190919
